FAERS Safety Report 7027247-2 (Version None)
Quarter: 2010Q4

REPORT INFORMATION
  Report Type: 
  Country: None (occurrence: None)
  Receive Date: 20101004
  Receipt Date: 20100924
  Transmission Date: 20110411
  Serious: Yes (Hospitalization)
  Sender: FDA-Public Use
  Company Number: US-ASTRAZENECA-2010SE35723

PATIENT
  Age: 69 Year
  Sex: Female
  Weight: 61.2 kg

DRUGS (2)
  1. PRILOSEC OTC [Suspect]
     Indication: GASTROOESOPHAGEAL REFLUX DISEASE
     Route: 048
  2. LOPRESSOR [Concomitant]
     Indication: BLOOD PRESSURE INCREASED

REACTIONS (9)
  - ACTIVITIES OF DAILY LIVING IMPAIRED [None]
  - ASTHENIA [None]
  - BLOOD PRESSURE INCREASED [None]
  - BRADYCARDIA [None]
  - CONFUSIONAL STATE [None]
  - DEPRESSION [None]
  - OVERDOSE [None]
  - TACHYCARDIA [None]
  - VERTIGO [None]
